FAERS Safety Report 4570356-8 (Version None)
Quarter: 2005Q1

REPORT INFORMATION
  Report Type: 
  Country: None (occurrence: None)
  Receive Date: 20050204
  Receipt Date: 20050128
  Transmission Date: 20050727
  Serious: Yes (Other)
  Sender: FDA-Public Use
  Company Number: US-ROCHE-394078

PATIENT
  Age: 76 Year
  Sex: Male
  Weight: 113.4 kg

DRUGS (5)
  1. BUMEX [Suspect]
     Indication: SWELLING
     Route: 048
     Dates: start: 19970615, end: 20030615
  2. BUMETANIDE [Suspect]
     Indication: SWELLING
     Route: 048
     Dates: start: 20030615
  3. ALTACE [Concomitant]
     Route: 048
  4. GLUCOPHAGE [Concomitant]
     Route: 048
  5. COREG [Concomitant]
     Route: 048

REACTIONS (2)
  - DRUG EFFECT DECREASED [None]
  - NECROBIOSIS LIPOIDICA DIABETICORUM [None]
